FAERS Safety Report 4835562-3 (Version None)
Quarter: 2005Q4

REPORT INFORMATION
  Report Type: 
  Country: None (occurrence: None)
  Receive Date: 20051123
  Receipt Date: 20051114
  Transmission Date: 20060501
  Serious: Yes (Hospitalization)
  Sender: FDA-Public Use
  Company Number: FR-BOEHRINGER INGELHEIM PHARMACEUTICALS, INC.-2005-FF-00824FF

PATIENT
  Age: 101 Year
  Sex: Female

DRUGS (6)
  1. MICARDIS 20 MG [Suspect]
     Dosage: 20 MG EACH TWO DAYS
     Route: 048
  2. CORDARONE [Concomitant]
  3. LEVOTHYROX [Concomitant]
  4. MAGNESIUM [Concomitant]
  5. IRON [Concomitant]
  6. VITAMINS [Concomitant]

REACTIONS (2)
  - AGITATION [None]
  - HALLUCINATION, VISUAL [None]
